FAERS Safety Report 7126042-3 (Version None)
Quarter: 2010Q4

REPORT INFORMATION
  Report Type: 
  Country: None (occurrence: None)
  Receive Date: 20101129
  Receipt Date: 20101115
  Transmission Date: 20110411
  Serious: Yes (Other)
  Sender: FDA-Public Use
  Company Number: FR-ACTELION-A-CH2010-36737

PATIENT
  Age: 3 Year
  Sex: Female

DRUGS (1)
  1. ZAVESCA [Suspect]
     Indication: NIEMANN-PICK DISEASE
     Dosage: 300 MG, UNK
     Route: 048

REACTIONS (3)
  - ENTERAL NUTRITION [None]
  - GASTROINTESTINAL DISORDER [None]
  - GROWTH RETARDATION [None]
